FAERS Safety Report 26042507 (Version 1)
Quarter: 2025Q4

REPORT INFORMATION
  Report Type: Spontaneous
  Country: US (occurrence: US)
  Receive Date: 20251113
  Receipt Date: 20251113
  Transmission Date: 20260117
  Serious: No
  Sender: PFIZER
  Company Number: US-PFIZER INC-PV202500131971

PATIENT
  Age: 64 Year
  Sex: Female

DRUGS (2)
  1. CHANTIX [Suspect]
     Active Substance: VARENICLINE TARTRATE
     Dosage: UNK
  2. DUPIXENT [Suspect]
     Active Substance: DUPILUMAB
     Indication: Chronic obstructive pulmonary disease
     Dosage: 300 MG QOW (EVERY OTHER WEEK)
     Route: 058
     Dates: start: 20250116

REACTIONS (4)
  - Diarrhoea [Unknown]
  - Abdominal distension [Unknown]
  - Constipation [Unknown]
  - Weight decreased [Unknown]

NARRATIVE: CASE EVENT DATE: 20250901
